FAERS Safety Report 20126906 (Version 1)
Quarter: 2021Q4

REPORT INFORMATION
  Report Type: Spontaneous
  Country: PT (occurrence: PT)
  Receive Date: 20211129
  Receipt Date: 20211129
  Transmission Date: 20220303
  Serious: Yes (Other)
  Sender: FDA-Public Use
  Company Number: PT-AMERICAN REGENT INC-2021003099

PATIENT
  Age: 68 Year
  Sex: Female
  Weight: 60 kg

DRUGS (14)
  1. VENOFER [Suspect]
     Active Substance: IRON SUCROSE
     Indication: Iron deficiency
     Dosage: 100 MG, 1 IN 1 WK (DILUTED IN 15 ML OF NACI)
     Dates: start: 20140226
  2. FOLIC ACID [Concomitant]
     Active Substance: FOLIC ACID
     Indication: Product used for unknown indication
     Dosage: 15 MILLIGRAM, 1 IN 1 WK
     Route: 048
     Dates: start: 20200413
  3. PANTOPRAZOLE [Concomitant]
     Active Substance: PANTOPRAZOLE
     Indication: Product used for unknown indication
     Dosage: 40 MILLIGRAM, 1 IN 1 D
     Route: 048
     Dates: start: 20150424
  4. ESCITALOPRAM [Concomitant]
     Active Substance: ESCITALOPRAM OXALATE
     Indication: Product used for unknown indication
     Dosage: 10 MILLIGRAM, 1 IN 1 D
     Route: 048
     Dates: start: 20200914
  5. DARBEPOETIN ALFA [Concomitant]
     Active Substance: DARBEPOETIN ALFA
     Indication: Product used for unknown indication
     Dosage: 1 DOSAGE FORM, 1 IN 1 WK
     Route: 042
     Dates: start: 20211020
  6. VITAMIN B [Concomitant]
     Active Substance: VITAMIN B
     Indication: Product used for unknown indication
     Dosage: 1 DOSAGE FORM, 1 IN 1D
     Route: 048
     Dates: start: 20200413
  7. LISINOPRIL [Concomitant]
     Active Substance: LISINOPRIL
     Indication: Product used for unknown indication
     Dosage: 10 MILLIGRAM, 1 IN 1 D
     Route: 048
     Dates: start: 20190814
  8. ETHYL LOFLAZEPATE [Concomitant]
     Active Substance: ETHYL LOFLAZEPATE
     Indication: Product used for unknown indication
     Dosage: 2 MILLIGRAM, 1 IN 1 D
     Route: 048
     Dates: start: 20170104
  9. SEVELAMER [Concomitant]
     Active Substance: SEVELAMER
     Indication: Product used for unknown indication
     Dosage: 1600 MILLIGRAM, 1 IN 1 D
     Route: 048
     Dates: start: 20210925
  10. HEPARIN SODIUM [Concomitant]
     Active Substance: HEPARIN SODIUM
     Indication: Product used for unknown indication
     Dosage: HALF VIAL
     Route: 042
  11. LORAZEPAM [Concomitant]
     Active Substance: LORAZEPAM
     Indication: Product used for unknown indication
     Dosage: 2.5 MILLIGRAM, 1 IN 1 D
     Route: 048
     Dates: start: 20161206
  12. ALFACALCIDOL [Concomitant]
     Active Substance: ALFACALCIDOL
     Indication: Product used for unknown indication
     Dosage: 3 MICROGRAM, 1 IN 1 WK
     Route: 048
     Dates: start: 20200413
  13. CARVEDILOL [Concomitant]
     Active Substance: CARVEDILOL
     Indication: Product used for unknown indication
     Dosage: 0.5 DOSAGE FORM, 1 IN 1D
     Route: 048
     Dates: start: 20210331
  14. ERYTHROPOIETIN [Concomitant]
     Active Substance: ERYTHROPOIETIN
     Indication: Product used for unknown indication
     Dosage: UNK
     Route: 065

REACTIONS (6)
  - Bradypnoea [Recovered/Resolved]
  - Malaise [Recovered/Resolved]
  - Hyperhidrosis [Recovered/Resolved]
  - Presyncope [Recovered/Resolved]
  - Hypotension [Recovered/Resolved]
  - Product administration error [Unknown]

NARRATIVE: CASE EVENT DATE: 20211020
